FAERS Safety Report 12520744 (Version 1)
Quarter: 2016Q2

REPORT INFORMATION
  Report Type: Spontaneous
  Country: US (occurrence: None)
  Receive Date: 20160630
  Receipt Date: 20160630
  Transmission Date: 20160815
  Serious: No
  Sender: FDA-Public Use
  Company Number: None

PATIENT
  Age: 55 Year
  Sex: Female

DRUGS (4)
  1. LIDOCAIN SOL [Concomitant]
  2. AFINITOR [Suspect]
     Active Substance: EVEROLIMUS
     Indication: PLASMA CELL MYELOMA
     Route: 048
     Dates: start: 20160602
  3. AROMASON [Concomitant]
  4. EXEMESTANE. [Concomitant]
     Active Substance: EXEMESTANE

REACTIONS (1)
  - Chest pain [None]

NARRATIVE: CASE EVENT DATE: 201606
